FAERS Safety Report 18226401 (Version 1)
Quarter: 2020Q3

REPORT INFORMATION
  Report Type: Spontaneous
  Country: FR (occurrence: FR)
  Receive Date: 20200903
  Receipt Date: 20200903
  Transmission Date: 20201103
  Serious: Yes (Life-Threatening)
  Sender: FDA-Public Use
  Company Number: FR-TEVA-2020-FR-1821836

PATIENT
  Age: 50 Year
  Sex: Female

DRUGS (6)
  1. DULAGLUTIDE ((MAMMIFERE/HAMSTER/CELLULES CHO)) [Concomitant]
     Active Substance: DULAGLUTIDE
     Dosage: 1.5 MG
     Route: 058
     Dates: end: 20200625
  2. REPAGLINIDE. [Concomitant]
     Active Substance: REPAGLINIDE
     Dosage: 6 MG
     Route: 048
     Dates: end: 20200625
  3. RAMIPRIL. [Concomitant]
     Active Substance: RAMIPRIL
     Dosage: 5 MG
     Route: 048
     Dates: end: 20200625
  4. ATORVASTATINE [Concomitant]
     Active Substance: ATORVASTATIN
     Dosage: 40 MG
     Route: 048
     Dates: end: 20200625
  5. KETOPROFENE [Suspect]
     Active Substance: KETOPROFEN
     Indication: BACK PAIN
     Dosage: UNKNOWN
     Route: 048
     Dates: start: 20200623, end: 20200625
  6. METFORMINE [Concomitant]
     Active Substance: METFORMIN HYDROCHLORIDE
     Dosage: 2 GRAM
     Route: 048
     Dates: end: 20200625

REACTIONS (1)
  - Septic shock [Recovered/Resolved]

NARRATIVE: CASE EVENT DATE: 20200625
